FAERS Safety Report 11251295 (Version 1)
Quarter: 2015Q3

REPORT INFORMATION
  Report Type: Spontaneous
  Country: US (occurrence: US)
  Receive Date: 20150708
  Receipt Date: 20150708
  Transmission Date: 20151125
  Serious: No
  Sender: FDA-Public Use
  Company Number: US-ELI_LILLY_AND_COMPANY-US201110007569

PATIENT
  Age: 60 Year
  Sex: Female

DRUGS (2)
  1. CISPLATIN. [Concomitant]
     Active Substance: CISPLATIN
     Indication: NON-SMALL CELL LUNG CANCER
     Dosage: UNK
  2. ALIMTA [Suspect]
     Active Substance: PEMETREXED DISODIUM
     Indication: NON-SMALL CELL LUNG CANCER

REACTIONS (2)
  - Hypocalcaemia [Unknown]
  - Creatinine renal clearance decreased [Unknown]
